FAERS Safety Report 24659290 (Version 4)
Quarter: 2025Q1

REPORT INFORMATION
  Report Type: Spontaneous
  Country: US (occurrence: US)
  Receive Date: 20241125
  Receipt Date: 20250103
  Transmission Date: 20250408
  Serious: No
  Sender: PFIZER
  Company Number: US-PFIZER INC-202400305715

PATIENT
  Age: 14 Year
  Sex: Male

DRUGS (1)
  1. GENOTROPIN [Suspect]
     Active Substance: SOMATROPIN
     Dosage: 2.6 MG, DAILY (7 DAYS PER WEEK)

REACTIONS (4)
  - Poor quality device used [Unknown]
  - Device power source issue [Unknown]
  - Dose calculation error [Unknown]
  - Device breakage [Unknown]
